FAERS Safety Report 5520310-4 (Version None)
Quarter: 2007Q4

REPORT INFORMATION
  Report Type: 
  Country: None (occurrence: None)
  Receive Date: 20071117
  Receipt Date: 20071117
  Transmission Date: 20080405
  Serious: Yes (Other)
  Sender: FDA-Public Use
  Company Number: None

PATIENT
  Sex: Female
  Weight: 87.5442 kg

DRUGS (1)
  1. PYRIDOSTIGMINE 60MG -VALEANT [Suspect]
     Indication: MYASTHENIA GRAVIS
     Dosage: 60MG ONE QID PO
     Route: 048
     Dates: start: 20030101, end: 20040101

REACTIONS (6)
  - FATIGUE [None]
  - HYPERHIDROSIS [None]
  - MUSCULAR WEAKNESS [None]
  - PHARMACEUTICAL PRODUCT COMPLAINT [None]
  - THERAPEUTIC RESPONSE UNEXPECTED WITH DRUG SUBSTITUTION [None]
  - TREATMENT FAILURE [None]
